FAERS Safety Report 5924071-6 (Version None)
Quarter: 2008Q4

REPORT INFORMATION
  Report Type: 
  Country: None (occurrence: None)
  Receive Date: 20081015
  Receipt Date: 20080725
  Transmission Date: 20090506
  Serious: Yes (Hospitalization, Other)
  Sender: FDA-Public Use
  Company Number: 2008BI027026

PATIENT
  Age: 54 Year
  Sex: Male
  Weight: 95 kg

DRUGS (25)
  1. ZEVALIN [Suspect]
     Indication: BONE MARROW CONDITIONING REGIMEN
     Dosage: 32 MCI; 1X; IV
     Route: 042
     Dates: start: 20071011, end: 20071011
  2. ZEVALIN [Suspect]
     Indication: NON-HODGKIN'S LYMPHOMA
     Dosage: 32 MCI; 1X; IV
     Route: 042
     Dates: start: 20071011, end: 20071011
  3. MABTHERA [Concomitant]
  4. CARMUSTINE [Concomitant]
  5. ETOPOSIDE [Concomitant]
  6. CYTARABINE [Concomitant]
  7. MELPHALAN [Concomitant]
  8. ROCEPHIN [Concomitant]
  9. AMIKILIN [Concomitant]
  10. VANCOMYCIN [Concomitant]
  11. VASOPRESSINS [Concomitant]
  12. NEUPOGEN [Concomitant]
  13. CORDARONE [Concomitant]
  14. HEPARIN [Concomitant]
  15. TIENAM [Concomitant]
  16. CYCLOPHOSPHAMIDE [Concomitant]
  17. RITUXIMAB [Concomitant]
  18. DOXORUBICIN HCL [Concomitant]
  19. VINDESINE [Concomitant]
  20. VINCRISTINE [Concomitant]
  21. PREDNISONE TAB [Concomitant]
  22. BLEOMYCIN SULFATE [Concomitant]
  23. DEXAMETHASONE [Concomitant]
  24. CISPLATIN [Concomitant]
  25. CYTARABINE [Concomitant]

REACTIONS (23)
  - ANOREXIA [None]
  - ATRIAL FIBRILLATION [None]
  - BLOOD CREATININE INCREASED [None]
  - CANDIDIASIS [None]
  - CARDIAC FAILURE [None]
  - CARDIOGENIC SHOCK [None]
  - CATHETER RELATED INFECTION [None]
  - CYSTITIS NONINFECTIVE [None]
  - DYSGEUSIA [None]
  - FUNGUS STOOL IDENTIFIED [None]
  - GASTROENTERITIS [None]
  - HAEMOGLOBIN DECREASED [None]
  - HIATUS HERNIA [None]
  - HYPOGAMMAGLOBULINAEMIA [None]
  - LUNG DISORDER [None]
  - PERICARDITIS [None]
  - PLATELET COUNT DECREASED [None]
  - RESPIRATORY DISTRESS [None]
  - SEPSIS [None]
  - SLEEP DISORDER [None]
  - STAPHYLOCOCCAL INFECTION [None]
  - TOXIC SHOCK SYNDROME [None]
  - WEIGHT DECREASED [None]
